FAERS Safety Report 9579187 (Version 1)
Quarter: 2013Q4

REPORT INFORMATION
  Report Type: Spontaneous
  Country: US (occurrence: US)
  Receive Date: 20131001
  Receipt Date: 20131001
  Transmission Date: 20140711
  Serious: No
  Sender: FDA-Public Use
  Company Number: US-AMGEN-USASP2013016874

PATIENT
  Age: 29 Year
  Sex: Female
  Weight: 104.31 kg

DRUGS (7)
  1. ENBREL [Suspect]
     Indication: RHEUMATOID ARTHRITIS
     Dosage: 50 MG, ONCE A WEEK
     Route: 058
  2. METHOTREXATE [Concomitant]
     Dosage: 2.5 MG, UNK
  3. ENALAPRIL [Concomitant]
     Dosage: 2.5 MG, UNK
  4. HYDROXYCHLOROQUINE [Concomitant]
     Dosage: 200 MG, UNK
  5. NOVOLOG [Concomitant]
     Dosage: 100 ML, UNK
  6. KARIVA [Concomitant]
     Dosage: UNK, UNK, 28 DAYS
  7. LEVOXYL [Concomitant]
     Dosage: 100 MUG, UNK

REACTIONS (2)
  - Oropharyngeal pain [Unknown]
  - Cough [Unknown]
